FAERS Safety Report 4998493-4 (Version None)
Quarter: 2006Q2

REPORT INFORMATION
  Report Type: 
  Country: None (occurrence: None)
  Receive Date: 20060508
  Receipt Date: 20060301
  Transmission Date: 20061013
  Serious: Yes (Hospitalization, Other)
  Sender: FDA-Public Use
  Company Number: 2005000997

PATIENT
  Age: 60 Year
  Sex: Female

DRUGS (2)
  1. TAHOR (ATORVASTATIN) [Suspect]
     Indication: HYPERCHOLESTEROLAEMIA
     Dosage: 10 MG (10 MG, 1 D), ORAL
     Route: 048
     Dates: start: 20041204, end: 20041220
  2. LOPRIL (CAPTOPRIL) [Concomitant]

REACTIONS (2)
  - SKIN DISCOLOURATION [None]
  - THROMBOCYTOPENIA [None]
